FAERS Safety Report 6042111-3 (Version None)
Quarter: 2009Q1

REPORT INFORMATION
  Report Type: 
  Country: None (occurrence: None)
  Receive Date: 20090116
  Receipt Date: 20090108
  Transmission Date: 20090719
  Serious: Yes (Other)
  Sender: FDA-Public Use
  Company Number: PHHY2008DE26713

PATIENT
  Sex: Female

DRUGS (6)
  1. ACLASTA [Suspect]
     Dosage: UNK
     Route: 042
     Dates: start: 20080626
  2. METHOTREXATE [Concomitant]
     Dosage: 10 MG/WEEK
     Dates: start: 20070101
  3. PREDNISOLONE [Concomitant]
     Dosage: UNK
     Dates: start: 20070101
  4. CALCICARE-D3 [Concomitant]
     Dosage: UNK
     Dates: start: 20070101
  5. MELOXICAM [Concomitant]
     Dosage: UNK
     Dates: start: 20070101
  6. OMEPRAZOLE [Concomitant]
     Dosage: UNK
     Dates: start: 20070101

REACTIONS (2)
  - CONTUSION [None]
  - SYNCOPE [None]
